FAERS Safety Report 5309821-4 (Version None)
Quarter: 2007Q2

REPORT INFORMATION
  Report Type: 
  Country: None (occurrence: None)
  Receive Date: 20070427
  Receipt Date: 20070421
  Transmission Date: 20071010
  Serious: Yes (Other)
  Sender: FDA-Public Use
  Company Number: US-ELI_LILLY_AND_COMPANY-US200704004841

PATIENT
  Age: 44 Year
  Sex: Female

DRUGS (2)
  1. XIGRIS [Suspect]
     Indication: SEPTIC SHOCK
     Dosage: UNK, OTHER
     Dates: start: 20070420
  2. LOVENOX [Concomitant]
     Indication: PROPHYLAXIS

REACTIONS (1)
  - DEEP VEIN THROMBOSIS [None]
